FAERS Safety Report 8620725-1 (Version None)
Quarter: 2012Q3

REPORT INFORMATION
  Report Type: 
  Country: None (occurrence: None)
  Receive Date: 20120816
  Receipt Date: 20120816
  Transmission Date: 20120928
  Serious: No
  Sender: FDA-Public Use
  Company Number: None

PATIENT
  Age: 68 Year
  Sex: Male
  Weight: 133 kg

DRUGS (1)
  1. CETACAINE SPRAY BENZOCAINE 14%, BUTAMBEN 2%, CETYLITE INDUSTRIES [Suspect]
     Dosage: 1 SPRAYS 1 TOP
     Route: 061
     Dates: start: 20120723, end: 20120723

REACTIONS (3)
  - OXYGEN SATURATION DECREASED [None]
  - METHAEMOGLOBINAEMIA [None]
  - CYANOSIS [None]
